APPROVED DRUG PRODUCT: PROCHLORPERAZINE EDISYLATE
Active Ingredient: PROCHLORPERAZINE EDISYLATE
Strength: EQ 5MG BASE/ML
Dosage Form/Route: INJECTABLE;INJECTION
Application: A089606 | Product #001
Applicant: WATSON LABORATORIES INC
Approved: Jul 8, 1987 | RLD: No | RS: No | Type: DISCN